FAERS Safety Report 8376657-X (Version None)
Quarter: 2012Q2

REPORT INFORMATION
  Report Type: 
  Country: None (occurrence: None)
  Receive Date: 20120522
  Receipt Date: 20120514
  Transmission Date: 20120825
  Serious: Yes (Hospitalization)
  Sender: FDA-Public Use
  Company Number: CA-ASTRAZENECA-2012SE22908

PATIENT
  Age: 25147 Day
  Sex: Female

DRUGS (16)
  1. VITAMIN B-12 [Concomitant]
     Indication: VITAMIN SUPPLEMENTATION
     Route: 048
  2. LENOLTEC NO 3 [Concomitant]
     Indication: BACK PAIN
     Route: 048
  3. METOPROLOL [Concomitant]
     Indication: MYOCARDIAL INFARCTION
     Route: 048
  4. APO FENO SUPER [Concomitant]
     Indication: HYPERLIPIDAEMIA
     Route: 048
  5. METFORMIN HCL [Concomitant]
     Indication: TYPE 2 DIABETES MELLITUS
     Route: 048
  6. ALLOPURINOL [Concomitant]
     Indication: GOUT
     Route: 048
  7. VITAMIN D [Concomitant]
     Indication: VITAMIN SUPPLEMENTATION
     Route: 048
  8. DOCUSATE SODIUM [Concomitant]
     Indication: CONSTIPATION
     Route: 048
  9. CALCIUM [Concomitant]
     Indication: MINERAL SUPPLEMENTATION
     Route: 048
  10. RAMIPRIL [Concomitant]
     Indication: MYOCARDIAL INFARCTION
     Route: 048
  11. AVANDIA [Concomitant]
     Indication: MYOCARDIAL INFARCTION
     Route: 048
  12. QUININE SULFATE [Concomitant]
     Indication: MUSCLE SPASMS
     Route: 048
  13. AZD6140 [Suspect]
     Indication: CORONARY ARTERY DISEASE
     Route: 048
     Dates: start: 20111104, end: 20120327
  14. ASPIRIN [Suspect]
     Indication: PROPHYLAXIS
     Route: 048
  15. MAGNESIUM GLUCONATE [Concomitant]
     Indication: MINERAL SUPPLEMENTATION
     Route: 048
  16. LIPITOR [Concomitant]
     Indication: HYPERLIPIDAEMIA
     Route: 048

REACTIONS (1)
  - DIVERTICULUM INTESTINAL HAEMORRHAGIC [None]
